FAERS Safety Report 24445071 (Version 1)
Quarter: 2024Q4

REPORT INFORMATION
  Report Type: Spontaneous
  Country: FR (occurrence: FR)
  Receive Date: 20241016
  Receipt Date: 20241016
  Transmission Date: 20250115
  Serious: Yes (Hospitalization)
  Sender: MYLAN
  Company Number: None

PATIENT
  Age: 71 Year
  Sex: Male
  Weight: 89 kg

DRUGS (4)
  1. PREDNISONE [Suspect]
     Active Substance: PREDNISONE
     Indication: Renal transplant
     Dosage: 15 MILLIGRAM, QD
     Route: 048
     Dates: start: 20240508, end: 20240601
  2. PREDNISONE [Suspect]
     Active Substance: PREDNISONE
     Dosage: 10 MILLIGRAM, QD
     Route: 048
     Dates: start: 20240601
  3. FILGRASTIM [Suspect]
     Active Substance: FILGRASTIM
     Indication: Neutropenia
     Dosage: 30 MILLION INTERNATIONAL UNIT,TOTAL(30MU/0.5ML,SOLUTION FOR INJECTION/INFUSION IN PREFILLED SYRINGE
     Route: 058
     Dates: start: 20240709, end: 20240709
  4. NULOJIX [Suspect]
     Active Substance: BELATACEPT
     Indication: Renal transplant
     Dosage: 750 MILLIGRAM,1 CYCLE (5 INJECTIONS)
     Route: 042
     Dates: start: 20240522, end: 20240716

REACTIONS (1)
  - Renal vein thrombosis [Not Recovered/Not Resolved]

NARRATIVE: CASE EVENT DATE: 20240717
